FAERS Safety Report 6571071-1 (Version None)
Quarter: 2010Q1

REPORT INFORMATION
  Report Type: 
  Country: None (occurrence: None)
  Receive Date: 20100204
  Receipt Date: 20091103
  Transmission Date: 20100710
  Serious: Yes (Hospitalization)
  Sender: FDA-Public Use
  Company Number: IT-ABBOTT-06P-083-0323035-00

PATIENT
  Sex: Male
  Weight: 70 kg

DRUGS (11)
  1. HUMIRA [Suspect]
     Indication: RHEUMATOID ARTHRITIS
     Route: 058
     Dates: start: 20041201, end: 20050901
  2. DELTACORTENE [Concomitant]
     Indication: RHEUMATOID ARTHRITIS
     Dates: start: 20030101
  3. NATRILIX [Concomitant]
     Indication: HYPERTENSION
  4. NORVASC [Concomitant]
     Indication: HYPERTENSION
  5. ANTRA [Concomitant]
     Indication: PROPHYLAXIS AGAINST GASTROINTESTINAL ULCER
     Dates: start: 20050916, end: 20051221
  6. DIFLUCAN [Concomitant]
     Indication: CANDIDIASIS
     Dates: start: 20050923, end: 20051014
  7. HUMIRA [Concomitant]
     Indication: RHEUMATOID ARTHRITIS
     Route: 058
     Dates: start: 20040816
  8. CELEBREX [Concomitant]
     Indication: RHEUMATOID ARTHRITIS
     Dates: start: 20051215
  9. MEPRAL [Concomitant]
     Indication: PROPHYLAXIS AGAINST GASTROINTESTINAL ULCER
     Dates: start: 20060101
  10. ZYLORIC [Concomitant]
     Indication: HYPERURICAEMIA
     Dates: start: 20060101
  11. BENADON [Concomitant]
     Indication: TUBERCULOSIS
     Dates: start: 20060101

REACTIONS (2)
  - CYSTITIS [None]
  - PULMONARY TUBERCULOSIS [None]
